FAERS Safety Report 15344411 (Version 3)
Quarter: 2018Q4

REPORT INFORMATION
  Report Type: Spontaneous
  Country: US (occurrence: US)
  Receive Date: 20180903
  Receipt Date: 20181227
  Transmission Date: 20190204
  Serious: Yes (Other)
  Sender: FDA-Public Use
  Company Number: US-SA-2018SA237877

PATIENT
  Age: 53 Year
  Sex: Female
  Weight: 82 kg

DRUGS (4)
  1. ZOMETA [Concomitant]
     Active Substance: ZOLEDRONIC ACID
     Dosage: UNK
  2. TAXOTERE [Suspect]
     Active Substance: DOCETAXEL
     Indication: BREAST CANCER FEMALE
     Dosage: 150-160MG, Q3W
     Route: 042
     Dates: start: 20121229, end: 20121229
  3. TAXOTERE [Suspect]
     Active Substance: DOCETAXEL
     Dosage: 150-160MG, Q3W
     Route: 042
     Dates: start: 20131118, end: 20131118
  4. FULVESTRANT. [Concomitant]
     Active Substance: FULVESTRANT
     Dosage: UNK

REACTIONS (2)
  - Alopecia [Not Recovered/Not Resolved]
  - Psychological trauma [Unknown]

NARRATIVE: CASE EVENT DATE: 201201
